FAERS Safety Report 15668409 (Version 2)
Quarter: 2018Q4

REPORT INFORMATION
  Report Type: Spontaneous
  Country: US (occurrence: US)
  Receive Date: 20181129
  Receipt Date: 20181211
  Transmission Date: 20190205
  Serious: No
  Sender: FDA-Public Use
  Company Number: PHEH2018US049339

PATIENT
  Age: 63 Year
  Sex: Female

DRUGS (1)
  1. ESTRADIOL. [Suspect]
     Active Substance: ESTRADIOL
     Indication: PRODUCT USED FOR UNKNOWN INDICATION
     Dosage: 0.05 MG, UNK
     Route: 062
     Dates: start: 20181118, end: 20181118

REACTIONS (7)
  - Wrong technique in product usage process [Unknown]
  - Feeling abnormal [Unknown]
  - Throat tightness [Unknown]
  - Diarrhoea [Unknown]
  - Malaise [Unknown]
  - Disturbance in attention [Unknown]
  - Abdominal pain upper [Unknown]

NARRATIVE: CASE EVENT DATE: 20181118
